FAERS Safety Report 6179736-0 (Version None)
Quarter: 2009Q2

REPORT INFORMATION
  Report Type: 
  Country: None (occurrence: None)
  Receive Date: 20090505
  Receipt Date: 20090429
  Transmission Date: 20091009
  Serious: Yes (Hospitalization)
  Sender: FDA-Public Use
  Company Number: FR-SANOFI-SYNTHELABO-A01200904649

PATIENT
  Sex: Male
  Weight: 72 kg

DRUGS (6)
  1. PREDNISONE [Suspect]
     Indication: COLON CANCER
     Dates: start: 20090401, end: 20090415
  2. AVE5026 OR PLACEBO [Concomitant]
     Indication: THROMBOSIS PROPHYLAXIS
     Dates: start: 20090401
  3. OXALIPLATIN [Suspect]
     Indication: COLON CANCER
     Dosage: 159 MG
     Route: 041
     Dates: start: 20090414, end: 20090414
  4. FLUOROURACIL [Suspect]
     Indication: COLON CANCER
     Route: 041
     Dates: start: 20090414, end: 20090415
  5. ELVORINE [Suspect]
     Indication: COLON CANCER
     Dosage: 374 MG
     Route: 041
     Dates: start: 20090414, end: 20090414
  6. ONDANSETRON [Concomitant]
     Dates: start: 20090401

REACTIONS (1)
  - ANGINA PECTORIS [None]
